FAERS Safety Report 13549197 (Version 1)
Quarter: 2017Q2

REPORT INFORMATION
  Report Type: Spontaneous
  Country: US (occurrence: US)
  Receive Date: 20170515
  Receipt Date: 20170515
  Transmission Date: 20170830
  Serious: Yes (Other)
  Sender: FDA-Public Use
  Company Number: None

PATIENT
  Age: 41 Year
  Sex: Male
  Weight: 95.4 kg

DRUGS (1)
  1. IOHEXOL 350 MG/ML [Suspect]
     Active Substance: IOHEXOL
     Indication: HAEMATURIA
     Dosage: ?          OTHER FREQUENCY:ONCE;?
     Route: 040

REACTIONS (3)
  - Pharyngeal oedema [None]
  - Swelling face [None]
  - Flushing [None]

NARRATIVE: CASE EVENT DATE: 20170223
